FAERS Safety Report 4294513-3 (Version None)
Quarter: 2004Q1

REPORT INFORMATION
  Report Type: 
  Country: None (occurrence: None)
  Receive Date: 20040211
  Receipt Date: 20040123
  Transmission Date: 20041129
  Serious: Yes (Hospitalization)
  Sender: FDA-Public Use
  Company Number: JP_040102562

PATIENT
  Age: 31 Year
  Sex: Female

DRUGS (7)
  1. ZYPREXA [Suspect]
     Indication: SCHIZOAFFECTIVE DISORDER
     Dosage: 20 MG/DAY
  2. QUETIAPINE FUMARATE [Concomitant]
  3. SULPIRIDE [Concomitant]
  4. VALPROATE SODIUM [Concomitant]
  5. BROMAZEPAM [Concomitant]
  6. TRIHEXYPHENIDYL HCL [Concomitant]
  7. VEGETAMIN B [Concomitant]

REACTIONS (9)
  - ANXIETY [None]
  - ASTHMA [None]
  - CONDITION AGGRAVATED [None]
  - DELUSION OF REFERENCE [None]
  - DEPRESSED MOOD [None]
  - DIABETES MELLITUS [None]
  - HALLUCINATION, AUDITORY [None]
  - PERSECUTORY DELUSION [None]
  - SCAR [None]
